FAERS Safety Report 7824577-9 (Version None)
Quarter: 2011Q4

REPORT INFORMATION
  Report Type: 
  Country: None (occurrence: None)
  Receive Date: 20111019
  Receipt Date: 20111005
  Transmission Date: 20120403
  Serious: Yes (Hospitalization, Other)
  Sender: FDA-Public Use
  Company Number: US-ELI_LILLY_AND_COMPANY-US201108005419

PATIENT
  Sex: Male

DRUGS (24)
  1. FISH OIL [Concomitant]
  2. ANTIBIOTICS [Concomitant]
     Indication: PNEUMONIA
  3. VORICONAZOLE [Concomitant]
  4. REGLAN [Concomitant]
  5. M.V.I. [Concomitant]
  6. TRICOR [Concomitant]
  7. NOVOLOG [Concomitant]
  8. CLARITIN [Concomitant]
  9. PRAVACHOL [Concomitant]
  10. METHOTREXATE [Concomitant]
     Indication: RHEUMATOID ARTHRITIS
  11. CALCIUM CARBONATE [Concomitant]
  12. LASIX [Concomitant]
  13. MIRALAX [Concomitant]
  14. HUMIRA [Concomitant]
     Indication: RHEUMATOID ARTHRITIS
  15. GLUCERNA [Concomitant]
  16. BYSTOLIC [Concomitant]
  17. NIACIN [Concomitant]
  18. FORTEO [Suspect]
     Indication: OSTEOPOROSIS
     Dosage: 20 UG, QD
     Route: 058
  19. FLOVENT [Concomitant]
  20. ACTOS [Concomitant]
  21. ALBUTEROL [Concomitant]
  22. ASCORBIC ACID [Concomitant]
  23. COLACE [Concomitant]
  24. FERROUS SULFATE TAB [Concomitant]

REACTIONS (2)
  - HEPATITIS [None]
  - PNEUMONIA CRYPTOCOCCAL [None]
